FAERS Safety Report 7883289 (Version 2)
Quarter: 2012Q4

REPORT INFORMATION
  Report Type: 
  Country: US (occurrence: US)
  Receive Date: 20110404
  Receipt Date: 20121112
  Transmission Date: 20130627
  Serious: Yes (Hospitalization)
  Sender: FDA-Public Use
  Company Number: US-AMGEN-USASP2011013852

PATIENT
  Age: 71 Year
  Sex: Female
  Weight: 51.25 kg

DRUGS (2)
  1. VECTIBIX [Suspect]
     Indication: COLON CANCER METASTATIC
     Dosage: 318 mg, q2wk
     Route: 042
     Dates: start: 20101214, end: 20110222
  2. DOXYCYCLINE [Concomitant]
     Dosage: UNK
     Dates: start: 20110208

REACTIONS (4)
  - Drug eruption [Recovering/Resolving]
  - Pyoderma gangrenosum [Recovering/Resolving]
  - Fungal skin infection [Recovering/Resolving]
  - Rash [Recovering/Resolving]
